FAERS Safety Report 8334381-3 (Version None)
Quarter: 2012Q2

REPORT INFORMATION
  Report Type: 
  Country: None (occurrence: None)
  Receive Date: 20120503
  Receipt Date: 20120424
  Transmission Date: 20120825
  Serious: Yes (Other)
  Sender: FDA-Public Use
  Company Number: US-ELI_LILLY_AND_COMPANY-US201204008578

PATIENT
  Sex: Female
  Weight: 59.9 kg

DRUGS (3)
  1. TYVASO [Concomitant]
     Indication: PULMONARY HYPERTENSION
     Dosage: 6 BREATHS, UNK
     Dates: start: 20120410, end: 20120422
  2. DIURETICS [Concomitant]
  3. ADCIRCA [Suspect]
     Dosage: UNK

REACTIONS (4)
  - LOSS OF CONSCIOUSNESS [None]
  - FALL [None]
  - DIZZINESS [None]
  - ASTHENIA [None]
